FAERS Safety Report 9285284 (Version 1)
Quarter: 2013Q2

REPORT INFORMATION
  Report Type: Spontaneous
  Country: IT (occurrence: None)
  Receive Date: 20130507
  Receipt Date: 20130507
  Transmission Date: 20140414
  Serious: Yes (Other)
  Sender: FDA-Public Use
  Company Number: GER/ITL/13/0029371

PATIENT
  Age: 70 Year
  Sex: Female

DRUGS (6)
  1. CLOPIDOGREL (CLOPIDOGREL) [Suspect]
     Indication: RETINAL ARTERY THROMBOSIS
     Route: 048
     Dates: start: 20121216, end: 20130115
  2. ZOFENOPRIL [Concomitant]
  3. CRESTOR [Concomitant]
  4. LACIPIL [Concomitant]
  5. EUTIROX (LEVOTHYROXINE SODIUM) [Concomitant]
  6. ZOTON [Concomitant]

REACTIONS (1)
  - Abdominal pain [None]
